FAERS Safety Report 6824325-5 (Version None)
Quarter: 2010Q3

REPORT INFORMATION
  Report Type: 
  Country: None (occurrence: None)
  Receive Date: 20100708
  Receipt Date: 20061016
  Transmission Date: 20110219
  Serious: No
  Sender: FDA-Public Use
  Company Number: US-PFIZER INC-2006128016

PATIENT
  Sex: Female
  Weight: 51.26 kg

DRUGS (18)
  1. CHANTIX [Suspect]
     Indication: SMOKING CESSATION THERAPY
     Route: 048
     Dates: start: 20061012
  2. ULTRAM [Concomitant]
  3. HYDROCHLOROTHIAZIDE [Concomitant]
  4. ZOLOFT [Concomitant]
  5. FERROUS SULFATE [Concomitant]
  6. ZYRTEC [Concomitant]
  7. PROTONIX [Concomitant]
  8. NEXIUM [Concomitant]
  9. DONNATAL [Concomitant]
  10. REQUIP [Concomitant]
  11. STOOL SOFTENER [Concomitant]
  12. RISPERDAL [Concomitant]
  13. MONTELUKAST SODIUM [Concomitant]
  14. TRAZODONE [Concomitant]
  15. NEURONTIN [Concomitant]
  16. ZOMIG [Concomitant]
     Indication: MIGRAINE
  17. APAP TAB [Concomitant]
     Indication: MIGRAINE
  18. VITAMINS [Concomitant]

REACTIONS (3)
  - INITIAL INSOMNIA [None]
  - MIDDLE INSOMNIA [None]
  - SLEEP DISORDER [None]
